FAERS Safety Report 4837818-7 (Version None)
Quarter: 2005Q4

REPORT INFORMATION
  Report Type: 
  Country: None (occurrence: None)
  Receive Date: 20051128
  Receipt Date: 20051004
  Transmission Date: 20060501
  Serious: Yes (Other)
  Sender: FDA-Public Use
  Company Number: US-MERCK-0510USA02356

PATIENT
  Age: 57 Year
  Sex: Male
  Weight: 109 kg

DRUGS (12)
  1. VIOXX [Suspect]
     Indication: ARTHRALGIA
     Route: 048
     Dates: start: 20031101, end: 20040101
  2. COREG [Concomitant]
     Route: 065
  3. ACCUPRIL [Concomitant]
     Route: 065
  4. AMARYL [Concomitant]
     Route: 065
  5. BENICAR [Concomitant]
     Route: 065
  6. CRESTOR [Concomitant]
     Route: 065
  7. NOVOLIN 70/30 [Concomitant]
     Route: 065
  8. NORVASC [Concomitant]
     Route: 065
  9. SYNTHROID [Concomitant]
     Route: 065
  10. TRICOR [Concomitant]
     Route: 065
  11. PROPOXYPHENE HYDROCHLORIDE [Concomitant]
     Route: 065
  12. FUROSEMIDE [Concomitant]
     Route: 065

REACTIONS (2)
  - CARDIAC FAILURE CONGESTIVE [None]
  - MYOCARDIAL INFARCTION [None]
